FAERS Safety Report 4931155-8 (Version None)
Quarter: 2006Q1

REPORT INFORMATION
  Report Type: 
  Country: None (occurrence: None)
  Receive Date: 20060227
  Receipt Date: 20060214
  Transmission Date: 20060701
  Serious: Yes (Life-Threatening)
  Sender: FDA-Public Use
  Company Number: 2006023791

PATIENT
  Age: 51 Year
  Sex: Male
  Weight: 78 kg

DRUGS (2)
  1. SILDENAFIL CITRATE [Suspect]
     Indication: PULMONARY HYPERTENSION
     Dosage: 75 MG (50 MG, DAILY), ORAL
     Route: 048
     Dates: start: 20051221, end: 20051226
  2. TOREM (TORASEMIDE) [Concomitant]

REACTIONS (1)
  - POLYURIA [None]
